FAERS Safety Report 4316319-9 (Version None)
Quarter: 2004Q1

REPORT INFORMATION
  Report Type: 
  Country: None (occurrence: None)
  Receive Date: 20040310
  Receipt Date: 20030206
  Transmission Date: 20041129
  Serious: Yes (Other)
  Sender: FDA-Public Use
  Company Number: HQWYE266807FEB03

PATIENT
  Age: 50 Year
  Sex: Female
  Weight: 47.67 kg

DRUGS (5)
  1. PROTONIX [Suspect]
     Indication: GASTRIC DISORDER
     Dosage: 40 MG 1 X PER 1 DAY ORAL
     Route: 048
     Dates: start: 20030128, end: 20030203
  2. PULMICORT [Concomitant]
  3. FOSAMAX [Concomitant]
  4. CELEBREX [Concomitant]
  5. RHINOCORT [Concomitant]

REACTIONS (1)
  - HYPERSENSITIVITY [None]
